FAERS Safety Report 14348950 (Version 4)
Quarter: 2018Q2

REPORT INFORMATION
  Report Type: Report from Study
  Country: None (occurrence: US)
  Receive Date: 20180104
  Receipt Date: 20180615
  Transmission Date: 20180711
  Serious: Yes (Hospitalization, Other)
  Sender: FDA-Public Use
  Company Number: US-ABBVIE-17K-163-2196549-00

PATIENT
  Age: 39 Year
  Sex: Male
  Weight: 124.85 kg

DRUGS (3)
  1. HUMIRA [Suspect]
     Active Substance: ADALIMUMAB
     Indication: ANKYLOSING SPONDYLITIS
     Route: 058
     Dates: start: 20170204, end: 20171213
  2. HUMIRA [Suspect]
     Active Substance: ADALIMUMAB
     Route: 058
     Dates: start: 20180106
  3. HUMIRA [Suspect]
     Active Substance: ADALIMUMAB
     Route: 058
     Dates: start: 2017, end: 20171222

REACTIONS (18)
  - Diarrhoea [Recovered/Resolved]
  - Ankylosing spondylitis [Recovered/Resolved]
  - Nausea [Recovered/Resolved]
  - Asthenia [Unknown]
  - Mass [Unknown]
  - Loss of consciousness [Recovered/Resolved]
  - Gastroenteritis viral [Not Recovered/Not Resolved]
  - Inappropriate schedule of drug administration [Recovered/Resolved]
  - Posture abnormal [Recovered/Resolved]
  - Dizziness [Unknown]
  - Depression [Recovering/Resolving]
  - Dehydration [Recovered/Resolved]
  - Injection site pain [Recovering/Resolving]
  - Pain [Unknown]
  - Intentional product misuse [Unknown]
  - Injection site swelling [Recovering/Resolving]
  - Vomiting [Recovered/Resolved]
  - Anxiety [Recovering/Resolving]

NARRATIVE: CASE EVENT DATE: 2017
